FAERS Safety Report 13874959 (Version 1)
Quarter: 2017Q3

REPORT INFORMATION
  Report Type: Spontaneous
  Country: US (occurrence: US)
  Receive Date: 20170816
  Receipt Date: 20170816
  Transmission Date: 20171127
  Serious: No
  Sender: FDA-Public Use
  Company Number: US-ROCHE-1068278

PATIENT
  Sex: Female

DRUGS (4)
  1. BENADRYL [Concomitant]
     Active Substance: DIPHENHYDRAMINE HYDROCHLORIDE
  2. LUCENTIS [Suspect]
     Active Substance: RANIBIZUMAB
     Indication: DIABETIC RETINOPATHY
  3. LUCENTIS [Suspect]
     Active Substance: RANIBIZUMAB
     Indication: MACULAR OEDEMA
     Dosage: LAST DOSE ON 01/MAY/2012
     Route: 050
     Dates: start: 2011
  4. CALAMINE CREAM [Concomitant]

REACTIONS (4)
  - Ear pain [Unknown]
  - Rash [Unknown]
  - Ear swelling [Unknown]
  - Furuncle [Unknown]
